FAERS Safety Report 18413731 (Version 1)
Quarter: 2020Q4

REPORT INFORMATION
  Report Type: Report from Study
  Country: EG (occurrence: EG)
  Receive Date: 20201022
  Receipt Date: 20201022
  Transmission Date: 20210114
  Serious: Yes (Other)
  Sender: FDA-Public Use
  Company Number: EG-AMGEN-EGYSL2020167406

PATIENT
  Age: 73 Year
  Sex: Female

DRUGS (2)
  1. AMGEVITA [Suspect]
     Active Substance: ADALIMUMAB
     Indication: ANKYLOSING SPONDYLITIS
     Dosage: 40 MILLIGRAM, Q2WK
     Route: 065
     Dates: start: 20200819
  2. CORTISONE [Concomitant]
     Active Substance: CORTISONE

REACTIONS (1)
  - Immunosuppression [Recovering/Resolving]
